FAERS Safety Report 24845661 (Version 1)
Quarter: 2025Q1

REPORT INFORMATION
  Report Type: Spontaneous
  Country: US (occurrence: None)
  Receive Date: 20250115
  Receipt Date: 20250115
  Transmission Date: 20250408
  Serious: No
  Sender: FDA-CTU
  Company Number: None

PATIENT
  Age: 49 Year
  Sex: Female
  Weight: 72 kg

DRUGS (1)
  1. CHLORHEXIDINE GLUCONATE [Suspect]
     Active Substance: CHLORHEXIDINE GLUCONATE
     Indication: Antibiotic prophylaxis
     Dates: start: 20250108, end: 20250108

REACTIONS (2)
  - Rash pruritic [None]
  - Skin burning sensation [None]

NARRATIVE: CASE EVENT DATE: 20250109
